FAERS Safety Report 7197872-7 (Version None)
Quarter: 2010Q4

REPORT INFORMATION
  Report Type: 
  Country: None (occurrence: None)
  Receive Date: 20101227
  Receipt Date: 20101223
  Transmission Date: 20110411
  Serious: Yes (Hospitalization)
  Sender: FDA-Public Use
  Company Number: BR-ROCHE-732142

PATIENT
  Sex: Female
  Weight: 63 kg

DRUGS (4)
  1. BONIVA [Suspect]
     Indication: OSTEOPENIA
     Route: 065
     Dates: start: 20100930, end: 20100930
  2. PANTOPRAZOLE [Suspect]
     Route: 065
  3. ANATENSOL [Concomitant]
     Indication: BREAST CANCER
  4. FLUOXETINE [Concomitant]

REACTIONS (9)
  - ABDOMINAL DISTENSION [None]
  - ABDOMINAL PAIN UPPER [None]
  - BACK PAIN [None]
  - CHEST PAIN [None]
  - DIARRHOEA [None]
  - EATING DISORDER [None]
  - OESOPHAGEAL PAIN [None]
  - SCIATIC NERVE NEUROPATHY [None]
  - VOMITING [None]
